FAERS Safety Report 7561994-9 (Version None)
Quarter: 2011Q2

REPORT INFORMATION
  Report Type: 
  Country: None (occurrence: None)
  Receive Date: 20110621
  Receipt Date: 20110606
  Transmission Date: 20111010
  Serious: Yes (Other)
  Sender: FDA-Public Use
  Company Number: US-CELGENEUS-163-21660-11061188

PATIENT

DRUGS (2)
  1. TRASTUZUMAB [Suspect]
     Dosage: 4MG/KG (AS A 90MIN INFUSION) THEN AT 2MG/KG INFUSED OVER 30MINS ON A WEEKLY SCHEDULE
     Route: 051
  2. ABRAXANE [Suspect]
     Dosage: 125MG/M2/WK, WITH A MIN DOSE OF 94MG/M2/WK + A MAX OF DOSE OF 130MG/MG2/WK
     Route: 051

REACTIONS (40)
  - FATIGUE [None]
  - PAIN IN EXTREMITY [None]
  - OEDEMA [None]
  - DECREASED APPETITE [None]
  - NEUTROPENIA [None]
  - VISION BLURRED [None]
  - INSOMNIA [None]
  - BACK PAIN [None]
  - NAIL DISORDER [None]
  - HAEMORRHAGE [None]
  - ANAEMIA [None]
  - DYSPEPSIA [None]
  - LEUKOPENIA [None]
  - VENTRICULAR DYSFUNCTION [None]
  - PAIN [None]
  - ALOPECIA [None]
  - DIARRHOEA [None]
  - VOMITING [None]
  - PYREXIA [None]
  - RHINITIS ALLERGIC [None]
  - LUNG DISORDER [None]
  - NAUSEA [None]
  - ARTHRALGIA [None]
  - MYALGIA [None]
  - SKIN EXFOLIATION [None]
  - TACHYCARDIA [None]
  - MOOD ALTERED [None]
  - ARRHYTHMIA [None]
  - INFECTION [None]
  - HEADACHE [None]
  - TUMOUR PAIN [None]
  - BONE PAIN [None]
  - COUGH [None]
  - LACRIMATION INCREASED [None]
  - CHILLS [None]
  - DIZZINESS [None]
  - DYSGEUSIA [None]
  - PERIPHERAL SENSORY NEUROPATHY [None]
  - CONSTIPATION [None]
  - DYSPNOEA [None]
